FAERS Safety Report 17470890 (Version 1)
Quarter: 2020Q1

REPORT INFORMATION
  Report Type: Spontaneous
  Country: FR (occurrence: FR)
  Receive Date: 20200227
  Receipt Date: 20200227
  Transmission Date: 20200409
  Serious: Yes (Hospitalization)
  Sender: FDA-Public Use
  Company Number: FR-TEVA-2020-FR-1192170

PATIENT
  Age: 50 Year
  Sex: Male

DRUGS (8)
  1. DEPAKOTE [Concomitant]
     Active Substance: DIVALPROEX SODIUM
     Dosage: 2 DOSAGE FORMS
     Route: 048
  2. OLANZAPINE. [Suspect]
     Active Substance: OLANZAPINE
     Indication: MENTAL DISORDER
     Dosage: 30 MG
     Route: 048
  3. SALBUTAMOL [Concomitant]
     Active Substance: ALBUTEROL
     Dosage: 600 MICROGRAM
     Route: 055
     Dates: start: 20190821
  4. CLOZAPINE. [Suspect]
     Active Substance: CLOZAPINE
     Indication: MENTAL DISORDER
     Dosage: 200 MG
     Route: 048
  5. SCOPODERM TTS 1 MG/72 HEURES, DISPOSITIF TRANSDERMIQUE [Concomitant]
     Active Substance: SCOPOLAMINE
     Dosage: 1 MG
     Route: 062
  6. LOXAPAC 25 MG, COMPRIME PELLICULE [Suspect]
     Active Substance: LOXAPINE SUCCINATE
     Indication: MENTAL DISORDER
     Dosage: 1 DOSAGE FORMS
     Route: 048
  7. AMOXICILLINE [Concomitant]
     Active Substance: AMOXICILLIN
     Dosage: 3 GM
     Route: 048
     Dates: start: 20190821
  8. PREDNISOLONE. [Suspect]
     Active Substance: PREDNISOLONE
     Indication: RESPIRATORY TRACT INFECTION
     Dosage: UNSPECIFIED
     Route: 048
     Dates: start: 20190821

REACTIONS (1)
  - Pneumonia [Recovered/Resolved]

NARRATIVE: CASE EVENT DATE: 20190807
